FAERS Safety Report 8936338 (Version 1)
Quarter: 2012Q4

REPORT INFORMATION
  Report Type: 
  Country: GB (occurrence: GB)
  Receive Date: 20121130
  Receipt Date: 20121130
  Transmission Date: 20130627
  Serious: Yes (Disabling)
  Sender: FDA-Public Use
  Company Number: GB-BAYER-2012-122362

PATIENT
  Sex: Male

DRUGS (1)
  1. LEVITRA 10 MG FILM-COATED TABLETS [Suspect]
     Indication: ERECTILE DYSFUNCTION
     Dosage: UNK
     Dates: start: 201203

REACTIONS (1)
  - Visual impairment [Recovering/Resolving]
